FAERS Safety Report 7483435-2 (Version None)
Quarter: 2011Q2

REPORT INFORMATION
  Report Type: 
  Country: None (occurrence: None)
  Receive Date: 20110517
  Receipt Date: 20110511
  Transmission Date: 20111010
  Serious: Yes (Life-Threatening, Hospitalization)
  Sender: FDA-Public Use
  Company Number: JP-ELI_LILLY_AND_COMPANY-JP201007005117

PATIENT
  Sex: Female
  Weight: 44 kg

DRUGS (5)
  1. GEMZAR [Suspect]
     Dosage: 1200 MG, OTHER
     Route: 042
     Dates: start: 20100510, end: 20100621
  2. GEMZAR [Suspect]
     Indication: PANCREATIC CARCINOMA STAGE IV
     Dosage: 1200 MG, OTHER
     Route: 042
     Dates: start: 20100420, end: 20100427
  3. DUROTEP [Concomitant]
     Indication: CANCER PAIN
     Dosage: 125 MG, DAILY (1/D)
     Route: 062
     Dates: start: 20100423
  4. LOXONIN [Concomitant]
     Indication: CANCER PAIN
     Dosage: 60 MG, 3/D
     Route: 048
     Dates: start: 20100403
  5. RABEPRAZOLE SODIUM [Concomitant]
     Indication: GASTRIC ULCER
     Dosage: 10 MG, DAILY (1/D)
     Route: 048
     Dates: start: 20100403

REACTIONS (2)
  - INTERSTITIAL LUNG DISEASE [None]
  - CHOLANGITIS ACUTE [None]
